FAERS Safety Report 13511058 (Version 2)
Quarter: 2017Q2

REPORT INFORMATION
  Report Type: Spontaneous
  Country: US (occurrence: US)
  Receive Date: 20170503
  Receipt Date: 20170524
  Transmission Date: 20170830
  Serious: Yes (Other)
  Sender: FDA-Public Use
  Company Number: US-PFIZER INC-2017189016

PATIENT
  Sex: Female

DRUGS (2)
  1. ACTEMRA [Concomitant]
     Active Substance: TOCILIZUMAB
     Dosage: 1 DF, UNK
     Route: 048
  2. XELJANZ XR [Suspect]
     Active Substance: TOFACITINIB CITRATE
     Dosage: 11 MG, UNK

REACTIONS (18)
  - Loss of personal independence in daily activities [Unknown]
  - Dyspnoea exertional [Unknown]
  - Arthralgia [Unknown]
  - Dyspepsia [Unknown]
  - Weight increased [Unknown]
  - Aspiration [Unknown]
  - Muscle spasms [Unknown]
  - Breast pain [Unknown]
  - Dysphonia [Unknown]
  - Feeling abnormal [Unknown]
  - Haematochezia [Unknown]
  - Drug ineffective [Unknown]
  - Dysphagia [Unknown]
  - Abscess oral [Unknown]
  - Fibromyalgia [Not Recovered/Not Resolved]
  - Blood pressure increased [Unknown]
  - Depression [Unknown]
  - Anxiety [Unknown]
